FAERS Safety Report 9149381 (Version 1)
Quarter: 2013Q1

REPORT INFORMATION
  Report Type: Spontaneous
  Country: US (occurrence: US)
  Receive Date: 20130308
  Receipt Date: 20130308
  Transmission Date: 20140127
  Serious: Yes (Other)
  Sender: FDA-Public Use
  Company Number: US-ENDO PHARMACEUTICALS INC.-OPCR20120069

PATIENT
  Age: 28 Year
  Sex: Male
  Weight: 91.71 kg

DRUGS (2)
  1. OPANA ER 30MG [Suspect]
     Indication: PAIN
     Route: 048
     Dates: start: 20120402
  2. OPANA ER 30MG [Concomitant]
     Indication: PAIN
     Route: 048
     Dates: start: 2006, end: 20120402

REACTIONS (1)
  - Hypersensitivity [Recovering/Resolving]
